FAERS Safety Report 14648918 (Version 1)
Quarter: 2018Q1

REPORT INFORMATION
  Report Type: Spontaneous
  Country: GB (occurrence: GB)
  Receive Date: 20180316
  Receipt Date: 20180316
  Transmission Date: 20180509
  Serious: Yes (Hospitalization)
  Sender: FDA-Public Use
  Company Number: GB-PFIZER INC-2018106612

PATIENT
  Age: 30 Year
  Sex: Male
  Weight: 83 kg

DRUGS (7)
  1. MELATONIN [Concomitant]
     Active Substance: MELATONIN
     Indication: INSOMNIA
     Dosage: 9 MG, 1X/DAY (NIGHT)
  2. FLUCONAZOLE. [Suspect]
     Active Substance: FLUCONAZOLE
     Indication: ORAL CANDIDIASIS
     Dosage: 50 MG, 1X/DAY
     Route: 048
     Dates: start: 20171127, end: 20171213
  3. CLOBAZAM [Interacting]
     Active Substance: CLOBAZAM
     Indication: EPILEPSY
     Dosage: 20 MG, 1X/DAY
     Route: 048
     Dates: start: 20000101
  4. BISACODYL. [Concomitant]
     Active Substance: BISACODYL
     Indication: CONSTIPATION
     Dosage: UNK UNK, AS NEEDED
  5. LAMOTRIGINE. [Concomitant]
     Active Substance: LAMOTRIGINE
     Indication: EPILEPSY
     Dosage: 400 MG, 1X/DAY
  6. KEPPRA [Concomitant]
     Active Substance: LEVETIRACETAM
     Indication: EPILEPSY
     Dosage: 1250MG MORNING AND 1000MG NIGHT
  7. BACLOFEN. [Concomitant]
     Active Substance: BACLOFEN
     Indication: MYOCLONUS
     Dosage: UNK

REACTIONS (3)
  - Drug interaction [Recovered/Resolved]
  - Labelled drug-drug interaction medication error [Unknown]
  - Sedation complication [Recovered/Resolved]

NARRATIVE: CASE EVENT DATE: 20171125
